FAERS Safety Report 22227996 (Version 1)
Quarter: 2023Q2

REPORT INFORMATION
  Report Type: Report from Study
  Country: IT (occurrence: IT)
  Receive Date: 20230419
  Receipt Date: 20230419
  Transmission Date: 20230721
  Serious: Yes (Other)
  Sender: FDA-Public Use
  Company Number: None

PATIENT
  Age: 18 Year
  Sex: Female
  Weight: 44 kg

DRUGS (8)
  1. METHOTREXATE (METHOTREXATE SODIUM) [Suspect]
     Active Substance: METHOTREXATE SODIUM
     Indication: Acute lymphocytic leukaemia recurrent
     Dosage: 154 MG INFUSION OVER 30 MIN. + 1389 MG SLOW INFUSION OVER 23.5 H   , METOTRESSATO TEVA
     Dates: start: 20230215, end: 20230216
  2. ONCASPAR [Suspect]
     Active Substance: PEGASPARGASE
     Indication: Acute lymphocytic leukaemia recurrent
     Dosage: 1540 IU (INTERNATIONAL UNIT) DAILY; 1540IU/DAY
     Dates: start: 20230221, end: 20230221
  3. THIOGUANINE ANHYDROUS [Suspect]
     Active Substance: THIOGUANINE ANHYDROUS
     Indication: Acute lymphocytic leukaemia recurrent
     Dosage: 160 MILLIGRAM DAILY; 160 MG/DAY
     Dates: start: 20230215, end: 20230220
  4. ELDISINE [Suspect]
     Active Substance: VINDESINE SULFATE
     Indication: Product used for unknown indication
     Dates: start: 20230215
  5. DAUNORUBICIN [Suspect]
     Active Substance: DAUNORUBICIN
     Indication: Acute lymphocytic leukaemia recurrent
     Dosage: 54 MILLIGRAM DAILY; 54 MG/DAY
     Dates: start: 20230220, end: 20230220
  6. IFOSFAMIDE [Suspect]
     Active Substance: IFOSFAMIDE
     Indication: Acute lymphocytic leukaemia recurrent
     Dosage: 615 MILLIGRAM DAILY; 615 MG/DAY
     Dates: start: 20230215, end: 20230220
  7. DEXAMETHASONE [Concomitant]
     Active Substance: DEXAMETHASONE
     Indication: Acute lymphocytic leukaemia recurrent
     Dosage: 28.6 MG/DAY FROM 02/15 TO 02/19/23 , 14.3 MG/DAY ON 02/20/23
     Dates: start: 20230215, end: 20230219
  8. DECAPEPTYL [Concomitant]
     Indication: Product used for unknown indication
     Dosage: .1 MILLIGRAM DAILY; 0,1 MG/DAY
     Dates: start: 20230223, end: 20230223

REACTIONS (2)
  - Drug-induced liver injury [Recovered/Resolved]
  - Anaemia [Recovering/Resolving]

NARRATIVE: CASE EVENT DATE: 20230220
